FAERS Safety Report 17060107 (Version 2)
Quarter: 2020Q1

REPORT INFORMATION
  Report Type: Spontaneous
  Country: NO (occurrence: NO)
  Receive Date: 20191121
  Receipt Date: 20200116
  Transmission Date: 20200409
  Serious: Yes (Other)
  Sender: FDA-Public Use
  Company Number: NO-ASTRAZENECA-2019SF41648

PATIENT
  Age: 59 Year
  Sex: Female

DRUGS (5)
  1. FORXIGA [Suspect]
     Active Substance: DAPAGLIFLOZIN
     Indication: DIABETES MELLITUS
     Route: 048
     Dates: start: 20180921, end: 20191107
  2. FORXIGA [Suspect]
     Active Substance: DAPAGLIFLOZIN
     Indication: DIABETES MELLITUS
     Route: 048
  3. DICLOFENAC [Concomitant]
     Active Substance: DICLOFENAC
  4. PENICILLIN [Concomitant]
     Active Substance: PENICILLIN
  5. DALACIN [Concomitant]
     Active Substance: CLINDAMYCIN

REACTIONS (3)
  - Limb injury [Recovered/Resolved]
  - Rash pruritic [Recovered/Resolved]
  - Fungal infection [Recovering/Resolving]

NARRATIVE: CASE EVENT DATE: 201809
